FAERS Safety Report 13242442 (Version 1)
Quarter: 2017Q1

REPORT INFORMATION
  Report Type: Spontaneous
  Country: FR (occurrence: FR)
  Receive Date: 20170216
  Receipt Date: 20170216
  Transmission Date: 20170428
  Serious: Yes (Death, Other)
  Sender: FDA-Public Use
  Company Number: FR-ELI_LILLY_AND_COMPANY-FR201702004932

PATIENT
  Age: 39 Year
  Sex: Male

DRUGS (2)
  1. ZYPREXA [Suspect]
     Active Substance: OLANZAPINE
     Indication: DEPRESSION
     Dosage: 10 MG, BID
     Route: 048
  2. EFFEXOR [Suspect]
     Active Substance: VENLAFAXINE HYDROCHLORIDE
     Indication: DEPRESSION
     Dosage: 3 DF, UNKNOWN
     Route: 048

REACTIONS (6)
  - Syncope [Unknown]
  - Hypersensitivity [Fatal]
  - Disseminated intravascular coagulation [Unknown]
  - Cardiac arrest [Fatal]
  - Livedo reticularis [Unknown]
  - Eosinophilic myocarditis [Fatal]

NARRATIVE: CASE EVENT DATE: 20161228
